FAERS Safety Report 16770252 (Version 1)
Quarter: 2020Q3

REPORT INFORMATION
  Report Type: Spontaneous
  Country: GB (occurrence: GB)
  Receive Date: 20190904
  Receipt Date: 20190904
  Transmission Date: 20201104
  Serious: Yes (Hospitalization)
  Sender: FDA-Public Use
  Company Number: GB-TEVA-2019-GB-1100473

PATIENT
  Age: 85 Year

DRUGS (7)
  1. LEVOTHYROXINE. [Concomitant]
     Active Substance: LEVOTHYROXINE
  2. PRIMIDONE. [Suspect]
     Active Substance: PRIMIDONE
     Indication: EPILEPSY
     Dosage: 250 MG, 1 DAY
     Route: 065
  3. RIVAROXABAN [Interacting]
     Active Substance: RIVAROXABAN
     Indication: PULMONARY EMBOLISM
     Dosage: 15 MG
     Route: 048
     Dates: start: 20180919, end: 20190418
  4. AMLODIPINE [Concomitant]
     Active Substance: AMLODIPINE BESYLATE
  5. BUMETANIDE. [Concomitant]
     Active Substance: BUMETANIDE
  6. PHENOBARBITAL SODIUM. [Interacting]
     Active Substance: PHENOBARBITAL SODIUM
     Indication: EPILEPSY
     Dosage: 30 MG, 1 DAY
     Route: 065
  7. RAMIPRIL. [Concomitant]
     Active Substance: RAMIPRIL

REACTIONS (2)
  - Pulmonary embolism [Unknown]
  - Inhibitory drug interaction [Recovering/Resolving]

NARRATIVE: CASE EVENT DATE: 20190416
